FAERS Safety Report 7935044-6 (Version None)
Quarter: 2011Q4

REPORT INFORMATION
  Report Type: 
  Country: None (occurrence: None)
  Receive Date: 20111122
  Receipt Date: 20111107
  Transmission Date: 20120403
  Serious: Yes (Other)
  Sender: FDA-Public Use
  Company Number: GB-ARROW GEN-2011-19405

PATIENT
  Age: 49 Year
  Sex: Male
  Weight: 100 kg

DRUGS (7)
  1. DIAZEPAM [Concomitant]
     Indication: DRUG DEPENDENCE
     Dosage: 10 MG, TID
     Route: 048
  2. ZOPICLONE [Concomitant]
     Indication: SLEEP DISORDER
     Dosage: 7.5 MG, UNKNOWN
     Route: 048
  3. FLUOXETINE [Concomitant]
     Indication: DEPRESSION
     Dosage: 60 MG, DAILY
     Route: 048
  4. BUSPIRONE [Concomitant]
     Indication: ANXIETY
     Dosage: 10 MG, DAILY
     Route: 048
  5. PROPRANOLOL [Concomitant]
     Indication: ANXIETY
     Dosage: 40 MG, DAILY
     Route: 048
  6. RISPERIDONE [Suspect]
     Indication: AFFECTIVE DISORDER
     Dosage: 1 MG, BID
     Route: 048
     Dates: start: 20110901, end: 20110930
  7. FLUOXETINE [Concomitant]
     Indication: OBSESSIVE-COMPULSIVE DISORDER
     Dosage: 60 MG, DAILY
     Route: 048

REACTIONS (1)
  - NOCTURIA [None]
